FAERS Safety Report 10611612 (Version 3)
Quarter: 2015Q3

REPORT INFORMATION
  Report Type: Report from Study
  Country: US (occurrence: US)
  Receive Date: 20141126
  Receipt Date: 20150818
  Transmission Date: 20151125
  Serious: No
  Sender: FDA-Public Use
  Company Number: US-GILEAD-2014-0124424

PATIENT
  Age: 62 Year
  Sex: Female

DRUGS (4)
  1. ADCIRCA [Concomitant]
     Active Substance: TADALAFIL
  2. AMBRISENTAN [Suspect]
     Active Substance: AMBRISENTAN
     Indication: PULMONARY ARTERIAL HYPERTENSION
     Dosage: 5 MG, QD
     Route: 065
     Dates: start: 20141027
  3. TYVASO [Concomitant]
     Active Substance: TREPROSTINIL
  4. FLOLAN [Concomitant]
     Active Substance: EPOPROSTENOL SODIUM

REACTIONS (2)
  - Headache [Recovered/Resolved]
  - Flushing [Unknown]
